FAERS Safety Report 5143040-X (Version None)
Quarter: 2006Q4

REPORT INFORMATION
  Report Type: 
  Country: None (occurrence: None)
  Receive Date: 20061103
  Receipt Date: 20061019
  Transmission Date: 20070319
  Serious: Yes (Other)
  Sender: FDA-Public Use
  Company Number: 2006UW20384

PATIENT
  Age: 70 Year
  Sex: Female
  Weight: 60 kg

DRUGS (7)
  1. NOLVADEX [Suspect]
     Indication: OVARIAN CANCER
     Route: 048
     Dates: start: 20060501
  2. OMEPRAZOLE [Concomitant]
     Indication: ABDOMINAL PAIN UPPER
     Route: 048
     Dates: start: 20040101
  3. CENTRUM [Concomitant]
     Route: 048
     Dates: start: 19960101
  4. LORAX [Concomitant]
     Indication: INSOMNIA
     Route: 048
     Dates: start: 20040101
  5. ASPIRIN [Concomitant]
     Indication: ANTICOAGULANT THERAPY
     Route: 048
  6. LACRIMA PLUS [Concomitant]
     Indication: DRY EYE
     Route: 061
  7. RINOSORO [Concomitant]
     Indication: RHINITIS
     Route: 045

REACTIONS (16)
  - ABDOMINAL PAIN UPPER [None]
  - BREAST MASS [None]
  - DRY MOUTH [None]
  - DRY SKIN [None]
  - EYELID OEDEMA [None]
  - HEPATIC STEATOSIS [None]
  - HOT FLUSH [None]
  - MUSCLE SPASMS [None]
  - NIPPLE DISORDER [None]
  - OFF LABEL USE [None]
  - PHARYNGEAL OEDEMA [None]
  - RHINITIS ALLERGIC [None]
  - SENSATION OF HEAVINESS [None]
  - SKIN EXFOLIATION [None]
  - VEIN DISORDER [None]
  - VISION BLURRED [None]
